APPROVED DRUG PRODUCT: LOCOID
Active Ingredient: HYDROCORTISONE BUTYRATE
Strength: 0.1%
Dosage Form/Route: OINTMENT;TOPICAL
Application: N018652 | Product #001 | TE Code: AB
Applicant: PRECISION DERMATOLOGY INC
Approved: Oct 29, 1982 | RLD: Yes | RS: Yes | Type: RX